FAERS Safety Report 14778242 (Version 1)
Quarter: 2018Q2

REPORT INFORMATION
  Report Type: Spontaneous
  Country: US (occurrence: US)
  Receive Date: 20180419
  Receipt Date: 20180419
  Transmission Date: 20180711
  Serious: No
  Sender: FDA-Public Use
  Company Number: US-BAYER-2018-068329

PATIENT
  Age: 81 Year
  Sex: Female
  Weight: 66 kg

DRUGS (1)
  1. ALEVE [Suspect]
     Active Substance: NAPROXEN SODIUM
     Dosage: UNK
     Route: 048

REACTIONS (6)
  - Expired product administered [Unknown]
  - Circumstance or information capable of leading to medication error [Unknown]
  - Product lot number issue [None]
  - Product use in unapproved indication [Unknown]
  - Therapeutic response unexpected [Unknown]
  - Underdose [None]
